FAERS Safety Report 21930027 (Version 2)
Quarter: 2023Q1

REPORT INFORMATION
  Report Type: Spontaneous
  Country: US (occurrence: US)
  Receive Date: 20230131
  Receipt Date: 20230310
  Transmission Date: 20230418
  Serious: Yes (Other)
  Sender: FDA-Public Use
  Company Number: US-BRISTOL-MYERS SQUIBB COMPANY-2023-013808

PATIENT
  Age: 72 Year
  Sex: Female
  Weight: 103.87 kg

DRUGS (1)
  1. REVLIMID [Suspect]
     Active Substance: LENALIDOMIDE
     Indication: Plasma cell myeloma
     Dosage: FREQ: DAILY X 14 DAYS ON AND 7 DAYS OFF?DAILY 1-14, OFF D 15-21 OF 21 DAY CYCLE
     Route: 048
     Dates: start: 20230119

REACTIONS (9)
  - Paraesthesia [Recovered/Resolved]
  - Night sweats [Not Recovered/Not Resolved]
  - Fatigue [Not Recovered/Not Resolved]
  - Off label use [Unknown]
  - Neuralgia [Not Recovered/Not Resolved]
  - Feeling abnormal [Not Recovered/Not Resolved]
  - Condition aggravated [Not Recovered/Not Resolved]
  - Bone lesion [Not Recovered/Not Resolved]
  - Rib fracture [Not Recovered/Not Resolved]
